FAERS Safety Report 16978925 (Version 1)
Quarter: 2019Q4

REPORT INFORMATION
  Report Type: Spontaneous
  Country: FR (occurrence: FR)
  Receive Date: 20191031
  Receipt Date: 20191031
  Transmission Date: 20200122
  Serious: Yes (Life-Threatening)
  Sender: FDA-Public Use
  Company Number: FR-PFIZER INC-2019466827

PATIENT
  Age: 17 Year
  Sex: Male

DRUGS (2)
  1. NORADRENALINE HOSPIRA [Suspect]
     Active Substance: NOREPINEPHRINE BITARTRATE
     Indication: PRODUCT ADMINISTRATION ERROR
     Dosage: UNK
     Route: 017
     Dates: start: 20191001, end: 20191001
  2. DEXAMETHASONE. [Concomitant]
     Active Substance: DEXAMETHASONE
     Dosage: UNK

REACTIONS (4)
  - Product administration error [Recovered/Resolved]
  - Hypertension [Recovered/Resolved]
  - Ventricular tachycardia [Recovered/Resolved]
  - Rash [Recovered/Resolved]

NARRATIVE: CASE EVENT DATE: 20191001
